FAERS Safety Report 8176914-6 (Version None)
Quarter: 2012Q1

REPORT INFORMATION
  Report Type: 
  Country: None (occurrence: None)
  Receive Date: 20120301
  Receipt Date: 20120224
  Transmission Date: 20120608
  Serious: Yes (Other)
  Sender: FDA-Public Use
  Company Number: DE-B.I. PHARMACEUTICALS,INC./RIDGEFIELD-2012-DE-00104DE

PATIENT
  Age: 3 Year
  Sex: Male
  Weight: 18 kg

DRUGS (1)
  1. ATROVENT [Suspect]
     Dosage: 1250 MCG
     Route: 055

REACTIONS (2)
  - ACCIDENTAL DRUG INTAKE BY CHILD [None]
  - TACHYPNOEA [None]
